FAERS Safety Report 16741962 (Version 1)
Quarter: 2019Q3

REPORT INFORMATION
  Report Type: Spontaneous
  Country: BE (occurrence: BE)
  Receive Date: 20190826
  Receipt Date: 20190826
  Transmission Date: 20191005
  Serious: Yes (Other)
  Sender: FDA-Public Use
  Company Number: BE-TEVA-2019-BE-1096318

PATIENT
  Sex: Female

DRUGS (1)
  1. CLOPIDOGREL [Suspect]
     Active Substance: CLOPIDOGREL BISULFATE
     Route: 065

REACTIONS (8)
  - Increased tendency to bruise [Unknown]
  - Arthralgia [Unknown]
  - Haemorrhagic diathesis [Unknown]
  - Tension [Unknown]
  - Paraesthesia [Unknown]
  - Dizziness [Unknown]
  - Confusional state [Unknown]
  - Nausea [Unknown]
